FAERS Safety Report 23307180 (Version 2)
Quarter: 2024Q2

REPORT INFORMATION
  Report Type: Spontaneous
  Country: DE (occurrence: DE)
  Receive Date: 20231218
  Receipt Date: 20240524
  Transmission Date: 20240716
  Serious: Yes (Life-Threatening, Other)
  Sender: FDA-Public Use
  Company Number: DE-AMGEN-DEUSP2023221246

PATIENT
  Age: 54 Year
  Sex: Male

DRUGS (3)
  1. BLINATUMOMAB [Suspect]
     Active Substance: BLINATUMOMAB
     Indication: B-cell type acute leukaemia
     Dosage: UNK (CYCLE 1)
     Route: 042
     Dates: start: 202112
  2. DAUNORUBICIN [Concomitant]
     Active Substance: DAUNORUBICIN
     Indication: B-cell type acute leukaemia
     Dosage: 2 X 45 MILLIGRAM/SQ. METER
     Route: 065
  3. VINCRISTINE [Concomitant]
     Active Substance: VINCRISTINE
     Indication: B-cell type acute leukaemia
     Dosage: 2 MILLIGRAM
     Route: 065

REACTIONS (11)
  - Cytopenia [Recovering/Resolving]
  - B-cell type acute leukaemia [Recovered/Resolved]
  - Graft versus host disease in liver [Recovered/Resolved]
  - Graft versus host disease in skin [Unknown]
  - Pancytopenia [Unknown]
  - Psychomotor retardation [Unknown]
  - Fine motor skill dysfunction [Unknown]
  - Fatigue [Unknown]
  - Insomnia [Unknown]
  - Oedema [Unknown]
  - Pyrexia [Unknown]

NARRATIVE: CASE EVENT DATE: 20220201
